FAERS Safety Report 23275366 (Version 1)
Quarter: 2023Q4

REPORT INFORMATION
  Report Type: Report from Study
  Country: US (occurrence: US)
  Receive Date: 20231208
  Receipt Date: 20231208
  Transmission Date: 20240110
  Serious: Yes (Hospitalization)
  Sender: FDA-Public Use
  Company Number: US-GILEAD-2023-0653191

PATIENT
  Age: 56 Year
  Sex: Male

DRUGS (1)
  1. SOFOSBUVIR\VELPATASVIR [Suspect]
     Active Substance: SOFOSBUVIR\VELPATASVIR
     Indication: Hepatitis C
     Dosage: 400/100MG, QD
     Route: 065
     Dates: start: 20231020, end: 20231117

REACTIONS (3)
  - Vomiting [Unknown]
  - Muscular weakness [Unknown]
  - Mood altered [Unknown]

NARRATIVE: CASE EVENT DATE: 20231117
